FAERS Safety Report 25144496 (Version 2)
Quarter: 2025Q3

REPORT INFORMATION
  Report Type: Spontaneous
  Country: CN (occurrence: CN)
  Receive Date: 20250401
  Receipt Date: 20250809
  Transmission Date: 20251021
  Serious: Yes (Other)
  Sender: ALEXION PHARMACEUTICALS
  Company Number: CN-ASTRAZENECA-202503CHN025766CN

PATIENT
  Age: 66 Year
  Sex: Female

DRUGS (1)
  1. DAPAGLIFLOZIN [Suspect]
     Active Substance: DAPAGLIFLOZIN
     Indication: Coronary arterial stent insertion
     Dosage: 10 MILLIGRAM, QD
     Dates: start: 20250316, end: 20250328

REACTIONS (2)
  - Urinary tract discomfort [Recovering/Resolving]
  - Burning sensation [Recovering/Resolving]
